FAERS Safety Report 7670123-2 (Version None)
Quarter: 2011Q3

REPORT INFORMATION
  Report Type: 
  Country: None (occurrence: None)
  Receive Date: 20110808
  Receipt Date: 20110729
  Transmission Date: 20111222
  Serious: Yes (Hospitalization)
  Sender: FDA-Public Use
  Company Number: BR-ASTRAZENECA-2011SE45772

PATIENT
  Age: 76 Year
  Sex: Male
  Weight: 73 kg

DRUGS (5)
  1. DENYL [Concomitant]
     Indication: DEPRESSION
     Route: 048
     Dates: start: 20110201
  2. GINKGO BILOBA [Concomitant]
     Indication: MEMORY IMPAIRMENT
     Route: 048
     Dates: start: 20080101
  3. MEMORIOL [Concomitant]
     Indication: MEMORY IMPAIRMENT
     Route: 048
     Dates: start: 20110101
  4. ANCORON [Concomitant]
     Indication: ARRHYTHMIA
     Route: 048
     Dates: start: 20100101
  5. ATACAND HCT [Suspect]
     Indication: HYPERTENSION
     Dosage: 8/12.5 MG ONCE DAILY
     Route: 048
     Dates: end: 20110401

REACTIONS (6)
  - MEMORY IMPAIRMENT [None]
  - DRUG INEFFECTIVE [None]
  - CARDIOVASCULAR DISORDER [None]
  - BLOOD PRESSURE INADEQUATELY CONTROLLED [None]
  - DEPRESSION [None]
  - ARRHYTHMIA [None]
